FAERS Safety Report 22620983 (Version 2)
Quarter: 2023Q2

REPORT INFORMATION
  Report Type: Report from Study
  Country: US (occurrence: US)
  Receive Date: 20230620
  Receipt Date: 20230629
  Transmission Date: 20230721
  Serious: Yes (Other)
  Sender: FDA-Public Use
  Company Number: US-BIOGEN-2023BI01187143

PATIENT
  Sex: Female
  Weight: 108.66 kg

DRUGS (12)
  1. DALFAMPRIDINE [Suspect]
     Active Substance: DALFAMPRIDINE
     Indication: Multiple sclerosis
     Dosage: 10 MILLIGRAM, Q 12 HRS
     Route: 048
     Dates: start: 20210331
  2. DALFAMPRIDINE [Suspect]
     Active Substance: DALFAMPRIDINE
     Indication: Gait disturbance
  3. TYSABRI [Suspect]
     Active Substance: NATALIZUMAB
     Indication: Relapsing-remitting multiple sclerosis
     Dosage: 300 MILLIGRAM, MONTHLY
     Route: 065
     Dates: start: 20210506
  4. ALLOPURINOL [Concomitant]
     Active Substance: ALLOPURINOL
     Indication: Product used for unknown indication
     Dosage: 1 DOSAGE FORM, QD
     Route: 065
  5. CARVEDILOL [Concomitant]
     Active Substance: CARVEDILOL
     Indication: Product used for unknown indication
     Dosage: 25 MILLIGRAM, BID
     Route: 065
  6. DIGOXIN [Concomitant]
     Active Substance: DIGOXIN
     Indication: Product used for unknown indication
     Dosage: UNK
     Route: 065
  7. ENTRESTO [Concomitant]
     Active Substance: SACUBITRIL\VALSARTAN
     Indication: Product used for unknown indication
     Dosage: 97-103 MILLIGRAM, BID
     Route: 065
  8. GABAPENTIN [Concomitant]
     Active Substance: GABAPENTIN
     Indication: Product used for unknown indication
     Dosage: 600 MILLIGRAM, 2-3 TIMES DAILY
     Route: 065
  9. METFORMIN [Concomitant]
     Active Substance: METFORMIN HYDROCHLORIDE
     Indication: Product used for unknown indication
     Dosage: 1000 MILLIGRAM, BID
     Route: 065
  10. MODERNA COVID-19 VACCINE [Concomitant]
     Active Substance: ELASOMERAN
     Indication: Product used for unknown indication
     Dosage: X3
     Route: 065
     Dates: start: 2021
  11. TORSEMIDE [Concomitant]
     Active Substance: TORSEMIDE
     Indication: Product used for unknown indication
     Dosage: 20 MILLIGRAM, QD
     Route: 048
  12. TYLENOL [Concomitant]
     Active Substance: ACETAMINOPHEN
     Indication: Product used for unknown indication
     Dosage: 325 MILLIGRAM, BID
     Route: 065

REACTIONS (35)
  - Cardiac failure congestive [Unknown]
  - Cardiomyopathy [Unknown]
  - Unevaluable event [Unknown]
  - Hypoaesthesia [Unknown]
  - Condition aggravated [Unknown]
  - Condition aggravated [Unknown]
  - Ejection fraction decreased [Unknown]
  - Urinary incontinence [Unknown]
  - Pneumonia [Unknown]
  - Diabetic retinopathy [Unknown]
  - Abdominal hernia [Unknown]
  - Arthritis [Unknown]
  - Alopecia [Unknown]
  - COVID-19 [Unknown]
  - Depression [Unknown]
  - Type 2 diabetes mellitus [Unknown]
  - Gout [Unknown]
  - Hyperlipidaemia [Unknown]
  - Hypoxia [Unknown]
  - Cystitis interstitial [Unknown]
  - Irritable bowel syndrome [Unknown]
  - Muscle spasms [Unknown]
  - Obesity [Unknown]
  - Herpes simplex [Unknown]
  - Osteoarthritis [Unknown]
  - Neuropathy peripheral [Unknown]
  - Psoriatic arthropathy [Unknown]
  - Restless legs syndrome [Unknown]
  - Burning sensation [Unknown]
  - Paraesthesia [Unknown]
  - Balance disorder [Unknown]
  - Multiple sclerosis [Not Recovered/Not Resolved]
  - Insomnia [Unknown]
  - Urinary tract infection [Unknown]
  - Asthenia [Unknown]
